FAERS Safety Report 7341525-9 (Version None)
Quarter: 2011Q1

REPORT INFORMATION
  Report Type: 
  Country: None (occurrence: None)
  Receive Date: 20110228
  Receipt Date: 20110217
  Transmission Date: 20110831
  Serious: Yes (Death)
  Sender: FDA-Public Use
  Company Number: AE11-022

PATIENT
  Age: 59 Year
  Sex: Male

DRUGS (4)
  1. DILTIAZEM [Suspect]
  2. ZOLPIDEM [Suspect]
  3. AMANTADINE [Suspect]
  4. ENALOPRIL [Suspect]

REACTIONS (1)
  - COMPLETED SUICIDE [None]
